FAERS Safety Report 4969888-X (Version None)
Quarter: 2006Q1

REPORT INFORMATION
  Report Type: 
  Country: None (occurrence: None)
  Receive Date: 20060202
  Receipt Date: 20051005
  Transmission Date: 20060701
  Serious: Yes (Hospitalization)
  Sender: FDA-Public Use
  Company Number: US-2005-006861

PATIENT
  Sex: Female

DRUGS (1)
  1. MIRENA [Suspect]
     Dosage: 20 UG/DAY, CONT, INTRA-UTERINE
     Route: 015
     Dates: start: 20041201, end: 20060130

REACTIONS (5)
  - DYSFUNCTIONAL UTERINE BLEEDING [None]
  - ENDOMETRIAL HYPERPLASIA [None]
  - IUD MIGRATION [None]
  - OVARIAN CYST [None]
  - OVARIAN CYST RUPTURED [None]
